FAERS Safety Report 9230641 (Version 5)
Quarter: 2013Q4

REPORT INFORMATION
  Report Type: Spontaneous
  Country: JP (occurrence: JP)
  Receive Date: 20130415
  Receipt Date: 20131118
  Transmission Date: 20140711
  Serious: Yes (Life-Threatening)
  Sender: FDA-Public Use
  Company Number: JP-JNJFOC-20130407406

PATIENT
  Age: 55 Year
  Sex: Male

DRUGS (8)
  1. FINIBAX [Suspect]
     Indication: CHOLANGITIS
     Route: 041
     Dates: start: 20130308, end: 20130318
  2. FINIBAX [Suspect]
     Indication: SEPSIS
     Route: 041
     Dates: start: 20130308, end: 20130318
  3. BAKTAR [Suspect]
     Indication: CHOLANGITIS
     Route: 048
     Dates: start: 20130321, end: 20130403
  4. BAKTAR [Suspect]
     Indication: SEPSIS
     Route: 048
     Dates: start: 20130321, end: 20130403
  5. ZOSYN [Concomitant]
     Indication: SEPSIS
     Route: 041
     Dates: start: 20130304, end: 20130308
  6. ZOSYN [Concomitant]
     Indication: CHOLANGITIS
     Route: 041
     Dates: start: 20130304, end: 20130308
  7. CEFMETAZON [Concomitant]
     Indication: INFECTION PROPHYLAXIS
     Route: 041
     Dates: start: 20130226, end: 20130227
  8. URSO [Concomitant]
     Indication: HYPERCHOLIA
     Route: 048
     Dates: start: 20130308

REACTIONS (3)
  - Renal impairment [Recovered/Resolved]
  - Drug-induced liver injury [Recovering/Resolving]
  - Hyperkalaemia [Recovered/Resolved]
